FAERS Safety Report 25925556 (Version 1)
Quarter: 2025Q4

REPORT INFORMATION
  Report Type: Spontaneous
  Country: US (occurrence: US)
  Receive Date: 20251015
  Receipt Date: 20251015
  Transmission Date: 20260117
  Serious: Yes (Death, Other)
  Sender: AMGEN
  Company Number: US-AMGEN-USASP2025200689

PATIENT
  Age: 55 Year
  Sex: Male

DRUGS (4)
  1. XGEVA [Suspect]
     Active Substance: DENOSUMAB
     Indication: Metastases to bone
     Dosage: 120 MILLIGRAM, QMO
     Route: 058
     Dates: start: 201702
  2. XGEVA [Suspect]
     Active Substance: DENOSUMAB
     Indication: Phaeochromocytoma
  3. XGEVA [Suspect]
     Active Substance: DENOSUMAB
     Indication: Paraganglion neoplasm
  4. PREDNISONE [Suspect]
     Active Substance: PREDNISONE
     Indication: Radiation myocarditis
     Dosage: 60 MILLIGRAM, QD
     Route: 065

REACTIONS (6)
  - Death [Fatal]
  - Phaeochromocytoma [Unknown]
  - Paraganglion neoplasm [Unknown]
  - Radiation myocarditis [Unknown]
  - Pleural effusion [Unknown]
  - Off label use [Unknown]

NARRATIVE: CASE EVENT DATE: 20180401
